FAERS Safety Report 10094701 (Version 1)
Quarter: 2014Q2

REPORT INFORMATION
  Report Type: Spontaneous
  Country: US (occurrence: None)
  Receive Date: 20140421
  Receipt Date: 20140421
  Transmission Date: 20141212
  Serious: No
  Sender: FDA-Public Use
  Company Number: None

PATIENT
  Age: 63 Year
  Sex: Female
  Weight: 88.45 kg

DRUGS (16)
  1. ALDACTONE [Concomitant]
  2. INSULIN [Suspect]
  3. ROCEPHIN [Suspect]
     Route: 042
     Dates: start: 20140414, end: 20140414
  4. SOMA [Concomitant]
  5. COREG [Concomitant]
  6. METFORMIN [Concomitant]
  7. SINGULAIR [Concomitant]
  8. KCL [Concomitant]
  9. ALBUTEROL [Concomitant]
  10. ALLOPURINOL [Concomitant]
  11. PLAVIX [Concomitant]
  12. COLACE [Concomitant]
  13. NEURONTIN [Concomitant]
  14. LOSARTAN [Concomitant]
  15. MORPHINE ER (MS CONTIN) [Concomitant]
  16. PROTONIX [Concomitant]

REACTIONS (3)
  - Dyspnoea [None]
  - Pruritus [None]
  - Swelling [None]
